FAERS Safety Report 8490417-0 (Version None)
Quarter: 2012Q3

REPORT INFORMATION
  Report Type: 
  Country: None (occurrence: None)
  Receive Date: 20120705
  Receipt Date: 20120618
  Transmission Date: 20120928
  Serious: No
  Sender: FDA-Public Use
  Company Number: VE-PFIZER INC-2012141087

PATIENT
  Age: 70 Year
  Sex: Male

DRUGS (2)
  1. ZOLOFT [Concomitant]
     Indication: DEPRESSION
     Dosage: UNK
  2. LIPITOR [Suspect]
     Dosage: UNK

REACTIONS (1)
  - NO ADVERSE EVENT [None]
